FAERS Safety Report 8535626-7 (Version None)
Quarter: 2012Q3

REPORT INFORMATION
  Report Type: 
  Country: None (occurrence: None)
  Receive Date: 20120725
  Receipt Date: 20120719
  Transmission Date: 20120928
  Serious: Yes (Other)
  Sender: FDA-Public Use
  Company Number: US-PFIZER INC-2012175238

PATIENT
  Sex: Male

DRUGS (3)
  1. PROTONIX [Concomitant]
     Dosage: UNK
  2. LYRICA [Suspect]
     Dosage: UNK
     Dates: end: 20120701
  3. EFFEXOR XR [Concomitant]
     Dosage: UNK

REACTIONS (4)
  - SPEECH DISORDER [None]
  - INSOMNIA [None]
  - HYPERTENSION [None]
  - FEELING JITTERY [None]
